FAERS Safety Report 23341769 (Version 1)
Quarter: 2023Q4

REPORT INFORMATION
  Report Type: Spontaneous
  Country: PL (occurrence: PL)
  Receive Date: 20231227
  Receipt Date: 20231227
  Transmission Date: 20240109
  Serious: Yes (Hospitalization, Other)
  Sender: FDA-Public Use
  Company Number: PL-BAYER-2023A165678

PATIENT
  Age: 16 Year
  Sex: Female
  Weight: 59 kg

DRUGS (2)
  1. GADOBUTROL [Suspect]
     Active Substance: GADOBUTROL
     Indication: Magnetic resonance imaging head
     Dosage: 6 ML, ONCE
     Route: 042
     Dates: start: 20231114, end: 20231114
  2. GADOBUTROL [Suspect]
     Active Substance: GADOBUTROL
     Indication: Magnetic resonance imaging head
     Dosage: UNK

REACTIONS (9)
  - Anaphylactic shock [Recovered/Resolved]
  - Contrast media reaction [None]
  - Asthenia [Recovered/Resolved]
  - Feeling hot [Recovered/Resolved]
  - Eyelid oedema [Recovered/Resolved]
  - Oropharyngeal discomfort [Recovered/Resolved]
  - Dyspnoea [Recovered/Resolved]
  - Hypotonia [Recovered/Resolved]
  - Visual field defect [None]

NARRATIVE: CASE EVENT DATE: 20231114
